FAERS Safety Report 7701411-9 (Version None)
Quarter: 2011Q3

REPORT INFORMATION
  Report Type: 
  Country: None (occurrence: None)
  Receive Date: 20110819
  Receipt Date: 20110819
  Transmission Date: 20111222
  Serious: Yes (Hospitalization)
  Sender: FDA-Public Use
  Company Number: None

PATIENT
  Sex: Male
  Weight: 106.5953 kg

DRUGS (12)
  1. COMPAZINE [Concomitant]
  2. MMX [Concomitant]
  3. BEVACIZUMAB 15MG/KG [Suspect]
     Indication: PROSTATE CANCER
     Dosage: 1643 MG IVPB
     Route: 042
     Dates: start: 20110713, end: 20110803
  4. BISMUTH SUBSALICYLATE [Concomitant]
  5. BISMUTH SUBSALICYLATE [Concomitant]
  6. DECADRON [Concomitant]
  7. TAXOTERE [Suspect]
     Indication: PROSTATE CANCER
     Dosage: 173 MG IVPB
     Route: 042
     Dates: start: 20110713, end: 20110803
  8. RAD001 2.5MG [Suspect]
     Indication: PROSTATE CANCER
     Dosage: RAD001 2.5MG PO
     Route: 048
     Dates: start: 20110714, end: 20110811
  9. ZOFRAN [Concomitant]
  10. METOPROLOL [Concomitant]
  11. ARANESP [Concomitant]
  12. AMBIEN [Concomitant]

REACTIONS (2)
  - FEBRILE NEUTROPENIA [None]
  - ANAEMIA [None]
